FAERS Safety Report 6440564-X (Version None)
Quarter: 2009Q4

REPORT INFORMATION
  Report Type: 
  Country: None (occurrence: None)
  Receive Date: 20091113
  Receipt Date: 20091102
  Transmission Date: 20100525
  Serious: Yes (Other)
  Sender: FDA-Public Use
  Company Number: US-WATSON-2009-09318

PATIENT
  Age: 38 Year
  Sex: Male

DRUGS (2)
  1. GABAPENTIN [Suspect]
     Indication: HEADACHE
     Dosage: 2400 TO 4800 MG, DAILY
     Route: 048
  2. GABAPENTIN [Suspect]
     Indication: ANXIETY

REACTIONS (2)
  - DELIRIUM [None]
  - DEPENDENCE [None]
